FAERS Safety Report 14909918 (Version 4)
Quarter: 2018Q4

REPORT INFORMATION
  Report Type: Spontaneous
  Country: JP (occurrence: JP)
  Receive Date: 20180517
  Receipt Date: 20181226
  Transmission Date: 20190204
  Serious: Yes (Disabling, Other)
  Sender: FDA-Public Use
  Company Number: PHJP2018JP010542

PATIENT
  Age: 0 Year
  Sex: Male
  Weight: 2.19 kg

DRUGS (7)
  1. NEORAL [Suspect]
     Active Substance: CYCLOSPORINE
     Indication: FOETAL EXPOSURE DURING PREGNANCY
     Dosage: MOTHER^S DOSE: 75 MG/DAY
     Route: 064
     Dates: start: 20180214
  2. PREDONINE [Suspect]
     Active Substance: PREDNISOLONE
     Indication: FOETAL EXPOSURE DURING PREGNANCY
     Dosage: MOTHER^S DOSE: 40 MG/DAY
     Route: 064
     Dates: start: 20180202, end: 20180215
  3. SOL-MELCORT [Suspect]
     Active Substance: METHYLPREDNISOLONE SODIUM SUCCINATE
     Indication: FOETAL EXPOSURE DURING PREGNANCY
     Dosage: MOTHER^S DOSE: 500 MG/DAY
     Route: 064
     Dates: start: 20180130, end: 20180201
  4. NEORAL [Suspect]
     Active Substance: CYCLOSPORINE
     Dosage: MOTHER^S DOSE: 90 MG/DAY
     Route: 064
     Dates: start: 20180220
  5. SOL-MELCORT [Suspect]
     Active Substance: METHYLPREDNISOLONE SODIUM SUCCINATE
     Dosage: MOTHER^S DOSE: 500 MG/DAY
     Route: 064
     Dates: start: 20180216, end: 20180218
  6. CLEXANE [Suspect]
     Active Substance: ENOXAPARIN SODIUM
     Indication: FOETAL EXPOSURE DURING PREGNANCY
     Dosage: MOTHER^S DOSE: 2000IU/DAY
     Route: 064
     Dates: start: 20180201, end: 20180208
  7. PREDONINE [Suspect]
     Active Substance: PREDNISOLONE
     Dosage: MOTHER^S DOSE: 30 MG/DAY
     Route: 064
     Dates: start: 20180216, end: 20180313

REACTIONS (4)
  - Congenital coronary artery malformation [Unknown]
  - Low birth weight baby [Unknown]
  - Premature baby [Unknown]
  - Foetal exposure during pregnancy [Unknown]

NARRATIVE: CASE EVENT DATE: 20180214
